FAERS Safety Report 5747527-8 (Version None)
Quarter: 2008Q2

REPORT INFORMATION
  Report Type: 
  Country: None (occurrence: None)
  Receive Date: 20080523
  Receipt Date: 20080516
  Transmission Date: 20081010
  Serious: Yes (Other)
  Sender: FDA-Public Use
  Company Number: US-ASTRAZENECA-2008UW10130

PATIENT
  Age: 68 Year
  Sex: Female
  Weight: 90.7 kg

DRUGS (5)
  1. CRESTOR [Suspect]
     Indication: BLOOD CHOLESTEROL INCREASED
     Route: 048
     Dates: start: 20071201
  2. CLONAZEPAM [Concomitant]
  3. FLEXERIL [Concomitant]
  4. ATENOLOL [Concomitant]
  5. ALDACTAZIDE [Concomitant]

REACTIONS (1)
  - PNEUMONIA [None]
